FAERS Safety Report 10248174 (Version 1)
Quarter: 2014Q2

REPORT INFORMATION
  Report Type: Spontaneous
  Country: GB (occurrence: GB)
  Receive Date: 20140620
  Receipt Date: 20140620
  Transmission Date: 20141212
  Serious: Yes (Other)
  Sender: FDA-Public Use
  Company Number: GB-MYLANLABS-2014S1012562

PATIENT
  Age: 83 Year
  Sex: Female

DRUGS (2)
  1. IRBESARTAN HYDROCHLOROTHIAZIDE [Suspect]
     Indication: PRODUCT USED FOR UNKNOWN INDICATION
  2. PARACETAMOL [Concomitant]
     Indication: HEADACHE

REACTIONS (6)
  - Nausea [Unknown]
  - Choking [Unknown]
  - Retching [Unknown]
  - Dysgeusia [None]
  - Product solubility abnormal [None]
  - Product quality issue [None]
